FAERS Safety Report 7745305-1 (Version None)
Quarter: 2011Q3

REPORT INFORMATION
  Report Type: 
  Country: None (occurrence: None)
  Receive Date: 20110819
  Receipt Date: 20110525
  Transmission Date: 20111222
  Serious: No
  Sender: FDA-Public Use
  Company Number: 027329

PATIENT
  Sex: Male
  Weight: 15 kg

DRUGS (4)
  1. TOPAMAX [Concomitant]
  2. KLONOPIN [Concomitant]
  3. LACOSAMIDE [Suspect]
     Indication: CONVULSION
     Dosage: (1 ML BID, 10MG/ML)
     Dates: start: 20100810, end: 20101001
  4. TEGRETOL [Concomitant]

REACTIONS (1)
  - CHROMATURIA [None]
